FAERS Safety Report 9297537 (Version 1)
Quarter: 2013Q2

REPORT INFORMATION
  Report Type: Spontaneous
  Country: US (occurrence: US)
  Receive Date: 20130520
  Receipt Date: 20130520
  Transmission Date: 20140414
  Serious: Yes (Disabling)
  Sender: FDA-Public Use
  Company Number: US-009507513-1305USA006826

PATIENT
  Age: 44 Year
  Sex: Female

DRUGS (2)
  1. CELESTONE [Suspect]
     Route: 048
  2. DECADRON [Suspect]

REACTIONS (2)
  - Adverse event [Unknown]
  - Drug hypersensitivity [Unknown]
